FAERS Safety Report 18861571 (Version 1)
Quarter: 2021Q1

REPORT INFORMATION
  Report Type: Spontaneous
  Country: IN (occurrence: IN)
  Receive Date: 20210209
  Receipt Date: 20210209
  Transmission Date: 20210420
  Serious: Yes (Other)
  Sender: FDA-Public Use
  Company Number: IN-SUN PHARMACEUTICAL INDUSTRIES LTD-2021R1-278746

PATIENT
  Age: 32 Year
  Sex: Female

DRUGS (2)
  1. TRAMADOL. [Suspect]
     Active Substance: TRAMADOL
     Indication: ABDOMINAL PAIN
     Dosage: 400 MILLIGRAM, DAILY
     Route: 065
  2. TRAMADOL. [Suspect]
     Active Substance: TRAMADOL
     Dosage: 2100 MILLIGRAM, DAILY
     Route: 065

REACTIONS (16)
  - Drug dependence [Unknown]
  - Tonic clonic movements [Unknown]
  - Bruxism [Unknown]
  - Intentional product misuse [Unknown]
  - Pain [Unknown]
  - Confusional state [Unknown]
  - Mental disorder [Unknown]
  - Behaviour disorder [Unknown]
  - Irritability [Unknown]
  - Restlessness [Unknown]
  - Insomnia [Unknown]
  - Cellulitis [Unknown]
  - Headache [Unknown]
  - Fatigue [Unknown]
  - Systemic scleroderma [Unknown]
  - Ulcer [Unknown]
